FAERS Safety Report 6668684-5 (Version None)
Quarter: 2010Q2

REPORT INFORMATION
  Report Type: 
  Country: None (occurrence: None)
  Receive Date: 20100401
  Receipt Date: 20100308
  Transmission Date: 20101027
  Serious: Yes (Other)
  Sender: FDA-Public Use
  Company Number: PTR-0043-2010

PATIENT
  Age: 68 Year
  Sex: Male

DRUGS (3)
  1. RIBAVIRIN [Suspect]
     Indication: HEPATITIS C
     Dosage: 800 MG ORAL; ORAL
     Route: 048
  2. RIBAVIRIN [Suspect]
     Indication: HEPATITIS C
     Dosage: 800 MG ORAL; ORAL
     Route: 048
  3. PEGINTERFERON ALFA-2A (PEGINTERFERON ALFA-2A) (UNKNOWN) [Suspect]
     Indication: HEPATITIS C
     Dosage: (100 MCG, 1 IN 1 WK) SUBCUTANEOUS
     Route: 058

REACTIONS (8)
  - ANAEMIA [None]
  - CARDIAC FAILURE CONGESTIVE [None]
  - HEPATITIS C RNA POSITIVE [None]
  - INTERSTITIAL LUNG DISEASE [None]
  - PRODUCT QUALITY ISSUE [None]
  - PULMONARY TOXICITY [None]
  - RESTRICTIVE PULMONARY DISEASE [None]
  - THERAPEUTIC RESPONSE DECREASED [None]
